FAERS Safety Report 15705867 (Version 2)
Quarter: 2019Q1

REPORT INFORMATION
  Report Type: Spontaneous
  Country: CO (occurrence: CO)
  Receive Date: 20181210
  Receipt Date: 20190305
  Transmission Date: 20190417
  Serious: Yes (Hospitalization, Other)
  Sender: FDA-Public Use
  Company Number: CO-CELGENEUS-COL-20180801400

PATIENT
  Age: 80 Year
  Sex: Male

DRUGS (3)
  1. VIDAZA [Suspect]
     Active Substance: AZACITIDINE
     Indication: MYELODYSPLASTIC SYNDROME
     Dosage: 100 MILLIGRAM
     Route: 058
     Dates: start: 20170601
  2. VIDAZA [Suspect]
     Active Substance: AZACITIDINE
     Dosage: 100 MILLIGRAM
     Route: 058
     Dates: start: 20181024
  3. VIDAZA [Suspect]
     Active Substance: AZACITIDINE
     Dosage: 100 MILLIGRAM
     Route: 058
     Dates: start: 20190131

REACTIONS (4)
  - Inguinal hernia [Not Recovered/Not Resolved]
  - Spinal fracture [Not Recovered/Not Resolved]
  - Anaemia [Recovered/Resolved]
  - Bronchitis [Recovered/Resolved]

NARRATIVE: CASE EVENT DATE: 20180802
